FAERS Safety Report 4567305-5 (Version None)
Quarter: 2005Q1

REPORT INFORMATION
  Report Type: 
  Country: None (occurrence: None)
  Receive Date: 20050127
  Receipt Date: 20050114
  Transmission Date: 20050727
  Serious: Yes (Other)
  Sender: FDA-Public Use
  Company Number: 2004115317

PATIENT
  Sex: Male
  Weight: 95.2554 kg

DRUGS (6)
  1. BEXTRA [Suspect]
     Indication: BACK PAIN
     Dosage: 10 MG (10 MG, QD INTERVAL, EVERY DAY), ORAL
     Route: 048
     Dates: start: 20020709, end: 20040801
  2. FINASTERIDE [Concomitant]
  3. TERAZOSIN HYDROCHLORIDE [Concomitant]
  4. SIMVASTATIN [Concomitant]
  5. ALPRAZOLAM [Concomitant]
  6. SILDENAFIL CITRATE (SILDENAFIL CITRATE) [Concomitant]

REACTIONS (10)
  - BLOOD CHOLESTEROL INCREASED [None]
  - DISEASE RECURRENCE [None]
  - DRUG INEFFECTIVE [None]
  - FEELING JITTERY [None]
  - NERVOUSNESS [None]
  - PRECANCEROUS SKIN LESION [None]
  - RASH [None]
  - RASH ERYTHEMATOUS [None]
  - RHEUMATOID ARTHRITIS [None]
  - ROSACEA [None]
